FAERS Safety Report 9027842 (Version 1)
Quarter: 2013Q1

REPORT INFORMATION
  Report Type: Spontaneous
  Country: US (occurrence: None)
  Receive Date: 20130115
  Receipt Date: 20130115
  Transmission Date: 20140127
  Serious: Yes (Life-Threatening)
  Sender: FDA-Public Use
  Company Number: None

PATIENT
  Age: 56 Year
  Sex: Male
  Weight: 127.01 kg

DRUGS (2)
  1. ANDRODERM [Suspect]
     Route: 062
     Dates: start: 20121130, end: 20121221
  2. ANDRODERM [Suspect]
     Route: 062

REACTIONS (2)
  - Suicidal ideation [None]
  - Depression [None]
